FAERS Safety Report 14244059 (Version 7)
Quarter: 2018Q3

REPORT INFORMATION
  Report Type: Spontaneous
  Country: IE (occurrence: IE)
  Receive Date: 20171201
  Receipt Date: 20180813
  Transmission Date: 20181010
  Serious: Yes (Hospitalization, Other)
  Sender: FDA-Public Use
  Company Number: IE-MYLANLABS-2017M1076127

PATIENT
  Age: 53 Year
  Sex: Female

DRUGS (3)
  1. CLOZARIL [Suspect]
     Active Substance: CLOZAPINE
     Dosage: UNK
     Route: 048
     Dates: start: 20171130
  2. CLOZARIL [Suspect]
     Active Substance: CLOZAPINE
     Dosage: 75 MG, UNK
     Route: 048
     Dates: start: 20180703
  3. CLOZARIL [Suspect]
     Active Substance: CLOZAPINE
     Indication: SCHIZOPHRENIA
     Dosage: UNK
     Route: 048
     Dates: start: 20090529, end: 201711

REACTIONS (5)
  - Surgery [Unknown]
  - Small cell lung cancer [Unknown]
  - Extra dose administered [Unknown]
  - Medication error [Unknown]
  - Metastases to liver [Unknown]

NARRATIVE: CASE EVENT DATE: 20171125
